FAERS Safety Report 25242337 (Version 7)
Quarter: 2025Q3

REPORT INFORMATION
  Report Type: Spontaneous
  Country: US (occurrence: US)
  Receive Date: 20250427
  Receipt Date: 20250815
  Transmission Date: 20251021
  Serious: Yes (Other)
  Sender: ALEXION PHARMACEUTICALS
  Company Number: US-AstraZeneca-CH-00853174AP

PATIENT
  Age: 77 Year
  Sex: Female

DRUGS (1)
  1. AIRSUPRA [Suspect]
     Active Substance: ALBUTEROL SULFATE\BUDESONIDE
     Indication: Asthma

REACTIONS (6)
  - Cataract [Unknown]
  - Product dose omission issue [Unknown]
  - Wrong technique in device usage process [Unknown]
  - Off label use [Unknown]
  - Device use issue [Unknown]
  - Device malfunction [Unknown]

NARRATIVE: CASE EVENT DATE: 20250419
